FAERS Safety Report 24793398 (Version 1)
Quarter: 2024Q4

REPORT INFORMATION
  Report Type: Report from Study
  Country: US (occurrence: US)
  Receive Date: 20241231
  Receipt Date: 20241231
  Transmission Date: 20250115
  Serious: Yes (Other)
  Sender: ALEXION PHARMACEUTICALS
  Company Number: US-ALXN-202412USA021870US

PATIENT

DRUGS (1)
  1. STRENSIQ [Suspect]
     Active Substance: ASFOTASE ALFA
     Dosage: UNK
     Route: 065

REACTIONS (11)
  - Injection site pain [Unknown]
  - Injection site erythema [Unknown]
  - Petechiae [Unknown]
  - Tooth hypoplasia [Unknown]
  - Dental caries [Unknown]
  - Gastrooesophageal reflux disease [Unknown]
  - Fatigue [Unknown]
  - Somnolence [Unknown]
  - Bone pain [Unknown]
  - Back pain [Unknown]
  - Arthralgia [Unknown]
